FAERS Safety Report 4444296-9 (Version None)
Quarter: 2004Q3

REPORT INFORMATION
  Report Type: 
  Country: None (occurrence: None)
  Receive Date: 20040729
  Receipt Date: 20031121
  Transmission Date: 20050211
  Serious: Yes (Death)
  Sender: FDA-Public Use
  Company Number: USA-2003-0011041

PATIENT
  Age: 39 Year
  Sex: Female
  Weight: 61.7 kg

DRUGS (7)
  1. MORPHINE SULFATE [Suspect]
  2. OXYCODONE HCL [Suspect]
  3. VENLAFAXINE HCL [Suspect]
  4. LAMOTRIGINE [Suspect]
  5. NICOTINE [Suspect]
  6. TRAZODONE HCL [Suspect]
  7. LEVETIRACETAM [Suspect]

REACTIONS (1)
  - ACCIDENTAL OVERDOSE [None]
